FAERS Safety Report 21916981 (Version 2)
Quarter: 2023Q1

REPORT INFORMATION
  Report Type: Spontaneous
  Country: US (occurrence: US)
  Receive Date: 20230126
  Receipt Date: 20230214
  Transmission Date: 20230417
  Serious: Yes (Other)
  Sender: FDA-Public Use
  Company Number: US-MYLANLABS-2023M1000015

PATIENT
  Sex: Male
  Weight: 122.46 kg

DRUGS (2)
  1. LIDOCAINE PATCH [Suspect]
     Active Substance: LIDOCAINE
     Indication: Back pain
     Dosage: 5 PERCENT, QD,  (2 PATCHES QD X EVERY 12 HOURS)
     Route: 062
     Dates: start: 20221227
  2. LIDOCAINE PATCH [Suspect]
     Active Substance: LIDOCAINE
     Dosage: 5 PERCENT, QD,  (2 PATCHES QD X EVERY 12 HOURS)
     Route: 062
     Dates: start: 20221227

REACTIONS (1)
  - Drug ineffective for unapproved indication [Recovering/Resolving]
